FAERS Safety Report 17880295 (Version 1)
Quarter: 2020Q2

REPORT INFORMATION
  Report Type: Spontaneous
  Country: US (occurrence: US)
  Receive Date: 20200610
  Receipt Date: 20200610
  Transmission Date: 20200714
  Serious: No
  Sender: FDA-Public Use
  Company Number: None

PATIENT
  Age: 73 Year
  Sex: Male
  Weight: 75 kg

DRUGS (1)
  1. LISINOPRIL (LISINOPRIL 20MG TAB) [Suspect]
     Active Substance: LISINOPRIL
     Indication: HYPERTENSION
     Dosage: ?          OTHER DOSE:HALF TAB;?
     Route: 048
     Dates: end: 20180120

REACTIONS (7)
  - Dizziness [None]
  - Asthenia [None]
  - Vision blurred [None]
  - Bradycardia [None]
  - Hyperkalaemia [None]
  - Blood creatinine increased [None]
  - Syncope [None]

NARRATIVE: CASE EVENT DATE: 20180120
